FAERS Safety Report 7988870-1 (Version None)
Quarter: 2011Q4

REPORT INFORMATION
  Report Type: 
  Country: None (occurrence: None)
  Receive Date: 20111219
  Receipt Date: 20111215
  Transmission Date: 20120403
  Serious: Yes (Death, Other)
  Sender: FDA-Public Use
  Company Number: US-AMGEN-USASP2011051662

PATIENT
  Age: 74 Year
  Sex: Female

DRUGS (1)
  1. NPLATE [Suspect]
     Indication: MYELODYSPLASTIC SYNDROME
     Dosage: 3 MUG/KG, UNK
     Dates: start: 20100206, end: 20100301

REACTIONS (2)
  - SUBDURAL HAEMORRHAGE [None]
  - MYELODYSPLASTIC SYNDROME [None]
